FAERS Safety Report 18931896 (Version 1)
Quarter: 2021Q1

REPORT INFORMATION
  Report Type: Spontaneous
  Country: US (occurrence: US)
  Receive Date: 20210224
  Receipt Date: 20210224
  Transmission Date: 20210420
  Serious: No
  Sender: FDA-Public Use
  Company Number: US-TEVA-2021-US-1882949

PATIENT
  Age: 74 Year
  Sex: Male

DRUGS (1)
  1. AUSTEDO [Suspect]
     Active Substance: DEUTETRABENAZINE
     Dosage: 96 MILLIGRAM DAILY;
     Route: 048
     Dates: start: 202012

REACTIONS (2)
  - Insomnia [Unknown]
  - Overdose [Unknown]

NARRATIVE: CASE EVENT DATE: 202012
